FAERS Safety Report 26132973 (Version 2)
Quarter: 2025Q4

REPORT INFORMATION
  Report Type: Spontaneous
  Country: US (occurrence: US)
  Receive Date: 20251209
  Receipt Date: 20251218
  Transmission Date: 20260118
  Serious: Yes (Hospitalization)
  Sender: ROCHE
  Company Number: US-ROCHE-10000451903

PATIENT
  Age: 51 Year
  Sex: Female

DRUGS (1)
  1. OCRELIZUMAB [Suspect]
     Active Substance: OCRELIZUMAB
     Indication: Multiple sclerosis

REACTIONS (5)
  - Abdominal abscess [Recovering/Resolving]
  - Sepsis [Recovering/Resolving]
  - Diverticulitis [Recovering/Resolving]
  - Infection [Recovering/Resolving]
  - Genital infection bacterial [Recovering/Resolving]
